FAERS Safety Report 18960386 (Version 2)
Quarter: 2021Q2

REPORT INFORMATION
  Report Type: Spontaneous
  Country: US (occurrence: US)
  Receive Date: 20210302
  Receipt Date: 20210427
  Transmission Date: 20210717
  Serious: Yes (Death)
  Sender: FDA-Public Use
  Company Number: US-PFIZER INC-2021204129

PATIENT
  Age: 79 Year
  Sex: Female

DRUGS (3)
  1. IBRANCE [Suspect]
     Active Substance: PALBOCICLIB
     Dosage: 75 MG ONCE AD DAY 3 WEEKS EVERY 4 WEEKS
     Route: 048
     Dates: start: 2021, end: 20210401
  2. IBRANCE [Suspect]
     Active Substance: PALBOCICLIB
     Dosage: 75 MG ONCE AD DAY 3 WEEKS EVERY 4 WEEKS
     Route: 048
     Dates: start: 202101, end: 20210214
  3. IBRANCE [Suspect]
     Active Substance: PALBOCICLIB
     Dosage: 75 MG ONCE AD DAY 3 WEEKS EVERY 4 WEEKS
     Route: 048
     Dates: start: 20181027, end: 202101

REACTIONS (2)
  - Malaise [Unknown]
  - Neoplasm progression [Fatal]
